FAERS Safety Report 6258157-6 (Version None)
Quarter: 2009Q3

REPORT INFORMATION
  Report Type: 
  Country: None (occurrence: None)
  Receive Date: 20090702
  Receipt Date: 20090702
  Transmission Date: 20100115
  Serious: Yes (Life-Threatening, Hospitalization)
  Sender: FDA-Public Use
  Company Number: None

PATIENT
  Age: 31 Year
  Sex: Female
  Weight: 77.1115 kg

DRUGS (1)
  1. OCELLA TABLETS 28'S BARR [Suspect]
     Indication: CONTRACEPTION
     Dosage: 1 PILL DAILY PO
     Route: 048
     Dates: start: 20080731, end: 20090122

REACTIONS (4)
  - DEEP VEIN THROMBOSIS [None]
  - GAIT DISTURBANCE [None]
  - PULMONARY EMBOLISM [None]
  - PULMONARY INFARCTION [None]
